FAERS Safety Report 4368237-8 (Version None)
Quarter: 2004Q2

REPORT INFORMATION
  Report Type: 
  Country: None (occurrence: None)
  Receive Date: 20040525
  Receipt Date: 20040513
  Transmission Date: 20050107
  Serious: Yes (Hospitalization)
  Sender: FDA-Public Use
  Company Number: 2003164665US

PATIENT
  Age: 50 Year
  Sex: Female
  Weight: 137 kg

DRUGS (2)
  1. CELEBREX [Suspect]
     Indication: NON-SMALL CELL LUNG CANCER
     Dosage: 400 MG, BID, ORAL
     Route: 048
     Dates: start: 20010204, end: 20030401
  2. TAXOTERE [Suspect]
     Indication: NON-SMALL CELL LUNG CANCER
     Dosage: 75 MG/M2, CYCLIC
     Dates: start: 20010209, end: 20010608

REACTIONS (10)
  - APPENDICITIS PERFORATED [None]
  - ATELECTASIS [None]
  - CARDIOMEGALY [None]
  - COUGH [None]
  - DIARRHOEA [None]
  - DYSPNOEA [None]
  - LUNG INFILTRATION [None]
  - PLEURAL EFFUSION [None]
  - RESPIRATORY TRACT CONGESTION [None]
  - WHEEZING [None]
